FAERS Safety Report 19990037 (Version 1)
Quarter: 2021Q4

REPORT INFORMATION
  Report Type: Spontaneous
  Country: US (occurrence: US)
  Receive Date: 20211023
  Receipt Date: 20211023
  Transmission Date: 20220303
  Serious: Yes (Other)
  Sender: FDA-Public Use
  Company Number: None

PATIENT
  Age: 21 Year
  Sex: Female
  Weight: 81 kg

DRUGS (1)
  1. REGEN-COV [Suspect]
     Active Substance: CASIRIVIMAB\IMDEVIMAB
     Indication: COVID-19
     Dosage: ?          OTHER FREQUENCY:ONCE;
     Route: 042
     Dates: start: 20211020, end: 20211020

REACTIONS (6)
  - Pruritus [None]
  - Urticaria [None]
  - Angioedema [None]
  - Angioedema [None]
  - Pharyngeal swelling [None]
  - Oropharyngeal blistering [None]

NARRATIVE: CASE EVENT DATE: 20211020
